FAERS Safety Report 9383558 (Version 1)
Quarter: 2013Q3

REPORT INFORMATION
  Report Type: Spontaneous
  Country: US (occurrence: US)
  Receive Date: 20130704
  Receipt Date: 20130704
  Transmission Date: 20140515
  Serious: No
  Sender: FDA-Public Use
  Company Number: US-PFIZER INC-2013194423

PATIENT
  Sex: Female

DRUGS (2)
  1. ADVIL [Suspect]
     Indication: ARTHRALGIA
     Dosage: UNK
  2. ADVIL [Suspect]
     Dosage: 800MG AT ONCE (4 GEL CAPLETS 200MG AT ONCE)
     Dates: start: 20130628

REACTIONS (8)
  - Extra dose administered [Unknown]
  - Feeling abnormal [Unknown]
  - Dyspepsia [Unknown]
  - Throat irritation [Unknown]
  - Insomnia [Unknown]
  - Discomfort [Unknown]
  - Nausea [Unknown]
  - Emotional disorder [Unknown]
